FAERS Safety Report 7263274-8 (Version None)
Quarter: 2011Q1

REPORT INFORMATION
  Report Type: 
  Country: None (occurrence: None)
  Receive Date: 20110130
  Receipt Date: 20100922
  Transmission Date: 20110831
  Serious: No
  Sender: FDA-Public Use
  Company Number: US-ABBOTT-10P-163-0673328-00

PATIENT
  Sex: Female
  Weight: 52.664 kg

DRUGS (2)
  1. HUMIRA [Suspect]
     Indication: RHEUMATOID ARTHRITIS
     Dates: start: 20100301
  2. THYROID TAB [Concomitant]
     Indication: HYPOTHYROIDISM
     Dates: start: 19890101

REACTIONS (2)
  - WEIGHT INCREASED [None]
  - HYPOTONIA [None]
